FAERS Safety Report 13307093 (Version 1)
Quarter: 2017Q1

REPORT INFORMATION
  Report Type: Report from Study
  Country: DE (occurrence: DE)
  Receive Date: 20170308
  Receipt Date: 20170308
  Transmission Date: 20170428
  Serious: Yes (Other)
  Sender: FDA-Public Use
  Company Number: DE-PFIZER INC-2013224746

PATIENT
  Age: 58 Year
  Sex: Female
  Weight: 78 kg

DRUGS (6)
  1. AROMASIN [Suspect]
     Active Substance: EXEMESTANE
     Indication: BREAST CANCER FEMALE
     Dosage: 25 MG, AS DAILY DOSE
     Route: 048
     Dates: start: 20110426
  2. LOSARTAN POTASSIUM. [Suspect]
     Active Substance: LOSARTAN POTASSIUM
     Indication: HYPERTENSION
     Dosage: 50 MG, 1X/DAY
     Route: 048
     Dates: start: 20020101
  3. MARCUMAR [Suspect]
     Active Substance: PHENPROCOUMON
     Indication: CARDIAC DISORDER
     Dosage: 3 MG, UNK
     Route: 048
     Dates: start: 20110701
  4. SALVYSAT [Suspect]
     Active Substance: SAGE
     Indication: FLUSHING
     Dosage: UNK
     Dates: start: 20120715
  5. METOPROLOL TARTRATE. [Suspect]
     Active Substance: METOPROLOL TARTRATE
     Indication: HYPERTENSION
     Dosage: 47.5 MG AS DAILY DOSE
     Route: 048
     Dates: start: 20110701
  6. SALVYSAT [Suspect]
     Active Substance: SAGE
     Indication: CHILLS

REACTIONS (1)
  - Thoracic vertebral fracture [Not Recovered/Not Resolved]

NARRATIVE: CASE EVENT DATE: 20130403
